FAERS Safety Report 7573405-8 (Version None)
Quarter: 2011Q2

REPORT INFORMATION
  Report Type: 
  Country: None (occurrence: None)
  Receive Date: 20110627
  Receipt Date: 20110405
  Transmission Date: 20111010
  Serious: No
  Sender: FDA-Public Use
  Company Number: A0921653A

PATIENT
  Age: 39 Year
  Sex: Male

DRUGS (2)
  1. LAMICTAL [Suspect]
     Indication: EPILEPSY
     Dosage: 200MG PER DAY
     Route: 048
     Dates: start: 20110209
  2. NO CONCURRENT MEDICATION [Concomitant]

REACTIONS (1)
  - AMNESIA [None]
